FAERS Safety Report 20556797 (Version 1)
Quarter: 2022Q1

REPORT INFORMATION
  Report Type: Spontaneous
  Country: CA (occurrence: CA)
  Receive Date: 20220307
  Receipt Date: 20220307
  Transmission Date: 20220424
  Serious: Yes (Other)
  Sender: FDA-Public Use
  Company Number: None

PATIENT
  Age: 70 Year
  Sex: Female

DRUGS (15)
  1. CARBOPLATIN [Suspect]
     Active Substance: CARBOPLATIN
     Indication: Product used for unknown indication
     Dosage: INJECTION- LIQ IV 10MG/ML
     Route: 042
  2. ACETAMINOPHEN\ASPIRIN\CAFFEINE [Concomitant]
     Active Substance: ACETAMINOPHEN\ASPIRIN\CAFFEINE
  3. DEXAMETHASONE [Concomitant]
     Active Substance: DEXAMETHASONE
  4. DIPHENHYDRAMINE [Concomitant]
     Active Substance: DIPHENHYDRAMINE
  5. GRANISETRON [Concomitant]
     Active Substance: GRANISETRON
  6. MAGNESIUM [Concomitant]
     Active Substance: MAGNESIUM
  7. PACLITAXEL [Concomitant]
     Active Substance: PACLITAXEL
     Dosage: LIQUID
     Route: 042
  8. RANITIDINE [Concomitant]
     Active Substance: RANITIDINE
  9. POLYETHYLENE GLYCOL 3350 [Concomitant]
     Active Substance: POLYETHYLENE GLYCOL 3350
  10. SENOKOT [Concomitant]
     Active Substance: SENNOSIDES
  11. TYLENOL WITH CODEINE [Concomitant]
     Active Substance: ACETAMINOPHEN\CODEINE PHOSPHATE
  12. VITAMIN C [Concomitant]
     Active Substance: ASCORBIC ACID
  13. VITAMIN D [Concomitant]
     Active Substance: VITAMIN D NOS
  14. LORAZEPAM [Concomitant]
     Active Substance: LORAZEPAM
  15. DOSTARLIMAB [Concomitant]
     Active Substance: DOSTARLIMAB

REACTIONS (6)
  - Abdominal discomfort [Recovered/Resolved]
  - Flushing [Recovered/Resolved]
  - Nasal congestion [Recovered/Resolved]
  - Oxygen saturation decreased [Recovered/Resolved]
  - Rash macular [Recovered/Resolved]
  - Sensation of foreign body [Recovered/Resolved]
